FAERS Safety Report 8020952-0 (Version None)
Quarter: 2011Q4

REPORT INFORMATION
  Report Type: 
  Country: None (occurrence: None)
  Receive Date: 20111229
  Receipt Date: 20111229
  Transmission Date: 20120403
  Serious: Yes (Hospitalization)
  Sender: FDA-Public Use
  Company Number: None

PATIENT
  Age: 68 Year
  Sex: Male
  Weight: 69.6 kg

DRUGS (2)
  1. MORPHINE [Suspect]
     Indication: PAIN
     Dosage: 15 MG BID PO
     Route: 048
     Dates: start: 20110807, end: 20110810
  2. HYDROMORPHONE HCL [Suspect]
     Indication: PAIN
     Dosage: 1 MG UD IV
     Route: 042
     Dates: start: 20110729, end: 20110730

REACTIONS (3)
  - MENTAL STATUS CHANGES [None]
  - AGGRESSION [None]
  - PARANOIA [None]
